FAERS Safety Report 7412686 (Version 2)
Quarter: 2013Q4

REPORT INFORMATION
  Report Type: Spontaneous
  Country: US (occurrence: US)
  Receive Date: 20100608
  Receipt Date: 20131216
  Transmission Date: 20140711
  Serious: Yes (Hospitalization, Other)
  Sender: FDA-Public Use
  Company Number: US-JNJFOC-20100601183

PATIENT
  Sex: Female
  Weight: 48.08 kg

DRUGS (8)
  1. SANDOZ FENTANYL TRANSDERMAL SYSTEM [Suspect]
     Indication: BACK PAIN
     Dosage: NDC# UNKNOWN
     Route: 062
     Dates: start: 2006, end: 201005
  2. SANDOZ FENTANYL TRANSDERMAL SYSTEM [Suspect]
     Indication: BACK PAIN
     Dosage: NDC# 0781-7241-55
     Route: 062
     Dates: start: 201005
  3. PERCOCET [Concomitant]
     Indication: BREAKTHROUGH PAIN
     Dosage: 5/325 MG AS NEEDED
     Route: 048
     Dates: start: 2005
  4. ALDACTONE [Concomitant]
     Indication: LIVER DISORDER
     Route: 048
     Dates: start: 2006
  5. DETROL LA [Concomitant]
     Indication: INCONTINENCE
     Route: 048
     Dates: start: 2006
  6. URSO [Concomitant]
     Indication: LIVER DISORDER
     Route: 048
     Dates: start: 2006
  7. FLOMAX [Concomitant]
     Indication: BLADDER DISORDER
     Route: 048
     Dates: start: 2006
  8. CALCIUM [Concomitant]
     Indication: MINERAL SUPPLEMENTATION
     Route: 048
     Dates: start: 2006

REACTIONS (9)
  - Spinal compression fracture [Recovered/Resolved]
  - Chronic obstructive pulmonary disease [Not Recovered/Not Resolved]
  - Nephropathy [Not Recovered/Not Resolved]
  - Pneumonia [Recovered/Resolved]
  - Product quality issue [Unknown]
  - Body height decreased [Not Recovered/Not Resolved]
  - Inadequate analgesia [Not Recovered/Not Resolved]
  - Withdrawal syndrome [Not Recovered/Not Resolved]
  - Back pain [Recovered/Resolved]
